FAERS Safety Report 5055472-9 (Version None)
Quarter: 2006Q3

REPORT INFORMATION
  Report Type: 
  Country: None (occurrence: None)
  Receive Date: 20060714
  Receipt Date: 20060630
  Transmission Date: 20061208
  Serious: Yes (Other)
  Sender: FDA-Public Use
  Company Number: 2006S1006086

PATIENT
  Age: 91 Year
  Sex: Male

DRUGS (9)
  1. FENTANYL TRANSDERMAL SYSTEM [Suspect]
     Dosage: SEE IMAGE
     Route: 062
     Dates: start: 20050601, end: 20060601
  2. FENTANYL TRANSDERMAL SYSTEM [Suspect]
     Dosage: SEE IMAGE
     Route: 062
     Dates: start: 20060629
  3. ALLOPURINOL [Concomitant]
  4. FUROSEMIDE [Concomitant]
  5. GABAPENTIN [Concomitant]
  6. WARFARIN SODIUM [Concomitant]
  7. RISEDRONATE SODIUM [Concomitant]
  8. LABETALOL HCL [Concomitant]
  9. POTASSIUM [Concomitant]

REACTIONS (4)
  - DRUG WITHDRAWAL SYNDROME [None]
  - INSOMNIA [None]
  - RESTLESS LEGS SYNDROME [None]
  - THERAPEUTIC RESPONSE UNEXPECTED WITH DRUG SUBSTITUTION [None]
